FAERS Safety Report 5917588-1 (Version None)
Quarter: 2008Q4

REPORT INFORMATION
  Report Type: 
  Country: None (occurrence: None)
  Receive Date: 20081010
  Receipt Date: 20081010
  Transmission Date: 20090506
  Serious: Yes (Hospitalization)
  Sender: FDA-Public Use
  Company Number: None

PATIENT
  Sex: Male
  Weight: 94 kg

DRUGS (6)
  1. CYCLOPHOSPHAMIDE [Suspect]
     Dosage: 2260 MG
  2. DOXORUBICIN HYDROCHLORIDE [Suspect]
     Dosage: 120 MG
  3. ETOPOSIDE [Suspect]
     Dosage: 600 MG
  4. PREDNISONE TAB [Suspect]
     Dosage: 1300 MG
  5. RITUXIMAB (MOAB C2B8 ANTI CD20, CHIMERIC) [Suspect]
     Dosage: 800 MG
  6. VINCRISTINE SULFATE [Suspect]
     Dosage: 3.2 MG

REACTIONS (5)
  - BLOOD POTASSIUM DECREASED [None]
  - CHEST PAIN [None]
  - DIARRHOEA [None]
  - NAUSEA [None]
  - VOMITING [None]
